FAERS Safety Report 16626770 (Version 1)
Quarter: 2019Q3

REPORT INFORMATION
  Report Type: Report from Study
  Country: FR (occurrence: FR)
  Receive Date: 20190724
  Receipt Date: 20190724
  Transmission Date: 20191004
  Serious: Yes (Death, Hospitalization, Other)
  Sender: FDA-Public Use
  Company Number: FR-ALVOGEN-2019-ALVOGEN-100613

PATIENT
  Age: 75 Year
  Sex: Male
  Weight: 72 kg

DRUGS (7)
  1. MERONEM [Suspect]
     Active Substance: MEROPENEM
     Indication: INFECTION
     Dosage: 3.0MG UNKNOWN
     Route: 042
     Dates: start: 20180908, end: 20180930
  2. ATENOLOL. [Suspect]
     Active Substance: ATENOLOL
     Indication: SEPTIC SHOCK
     Dosage: 60.0MG UNKNOWN
     Route: 065
     Dates: start: 20180908, end: 20181002
  3. PANTOPRAZOLE [Suspect]
     Active Substance: PANTOPRAZOLE
     Indication: PRODUCT USED FOR UNKNOWN INDICATION
     Dosage: 20 MG
     Route: 048
     Dates: start: 20180908, end: 20181101
  4. PERINDOPRIL [Suspect]
     Active Substance: PERINDOPRIL
     Indication: SEPTIC SHOCK
     Dosage: 4.0MG UNKNOWN
     Route: 048
     Dates: start: 20180908, end: 20181002
  5. AMLODIPINE BESILATE [Suspect]
     Active Substance: AMLODIPINE BESYLATE
     Indication: SEPTIC SHOCK
     Dosage: 5.0MG UNKNOWN
     Route: 048
     Dates: start: 20180908, end: 20181002
  6. VYXEOS [Suspect]
     Active Substance: CYTARABINE\DAUNORUBICIN
     Indication: ACUTE MYELOID LEUKAEMIA
     Dosage: 60.0MG/M2 UNKNOWN
     Route: 042
     Dates: start: 20180706, end: 20180710
  7. ESIDREX [Suspect]
     Active Substance: HYDROCHLOROTHIAZIDE
     Indication: BLOOD PRESSURE MANAGEMENT
     Dosage: 0.5MG UNKNOWN
     Route: 048
     Dates: start: 20180908, end: 20181002

REACTIONS (6)
  - Stenotrophomonas infection [Fatal]
  - Septic shock [Fatal]
  - Pseudomonas infection [Fatal]
  - Necrosis [Unknown]
  - Erysipelas [Fatal]
  - Dermo-hypodermitis [Unknown]

NARRATIVE: CASE EVENT DATE: 20180930
